FAERS Safety Report 8895159 (Version 1)
Quarter: 2012Q4

REPORT INFORMATION
  Report Type: 
  Country: US (occurrence: US)
  Receive Date: 20121107
  Receipt Date: 20121107
  Transmission Date: 20130627
  Serious: No
  Sender: FDA-Public Use
  Company Number: US-AMGEN-USASP2011056749

PATIENT
  Age: 67 Year
  Sex: Male
  Weight: 124.72 kg

DRUGS (10)
  1. ENBREL [Suspect]
     Indication: RHEUMATOID ARTHRITIS
     Dosage: 50 mg, qwk
  2. METFORMIN [Concomitant]
     Dosage: 500 mg, UNK
     Route: 048
  3. AVANDIA [Concomitant]
     Dosage: 2 mg, UNK
     Route: 048
  4. SIMVASTATIN [Concomitant]
     Dosage: 80 mg, UNK
     Route: 048
  5. FISH OIL [Concomitant]
     Dosage: UNK
     Route: 048
  6. CLARITIN                           /00413701/ [Concomitant]
     Dosage: 10 mg, UNK
     Route: 048
  7. BENADRYL                           /00000402/ [Concomitant]
     Dosage: 25 mg, UNK
     Route: 048
  8. INDOMETHACIN                       /00003801/ [Concomitant]
     Dosage: 25 mg, UNK
     Route: 048
  9. JANUVIA [Concomitant]
     Dosage: 100 mg, UNK
     Route: 048
  10. PREDNISONE [Concomitant]
     Dosage: 10 mg, UNK
     Route: 048

REACTIONS (2)
  - Productive cough [Unknown]
  - Sinus congestion [Unknown]
